FAERS Safety Report 10506741 (Version 2)
Quarter: 2014Q4

REPORT INFORMATION
  Report Type: Spontaneous
  Country: US (occurrence: US)
  Receive Date: 20141009
  Receipt Date: 20141105
  Transmission Date: 20150528
  Serious: No
  Sender: FDA-Public Use
  Company Number: US-009507513-1409USA014908

PATIENT
  Sex: Female
  Weight: 56.24 kg

DRUGS (2)
  1. NEXPLANON [Suspect]
     Active Substance: ETONOGESTREL
     Dosage: 1 STANDARD DOSE OF 1/ ONE ROD/THREE YEARS
     Route: 059
     Dates: start: 20130705, end: 20140424
  2. NEXPLANON [Suspect]
     Active Substance: ETONOGESTREL
     Dosage: 1 STANDARD DOSE OF 1/ ONE ROD/THREE YEARSUNK
     Route: 059
     Dates: start: 2014

REACTIONS (2)
  - No adverse event [Unknown]
  - Device breakage [Recovered/Resolved]
